FAERS Safety Report 8799211 (Version 1)
Quarter: 2012Q4

REPORT INFORMATION
  Report Type: 
  Country: US (occurrence: US)
  Receive Date: 20120920
  Receipt Date: 20120920
  Transmission Date: 20130627
  Serious: No
  Sender: FDA-Public Use
  Company Number: US-ASTRAZENECA-2012SE27062

PATIENT
  Sex: Male

DRUGS (8)
  1. LISINOPRIL [Suspect]
     Route: 048
  2. METOPROLOL [Suspect]
     Route: 048
  3. MIRALAX [Suspect]
     Route: 048
     Dates: start: 201111
  4. PLAVIX [Concomitant]
  5. AMLODIPINE [Concomitant]
  6. METFORMIN [Concomitant]
  7. LIPITOR [Concomitant]
  8. ASPIRIN [Concomitant]

REACTIONS (1)
  - Blood potassium increased [Unknown]
